FAERS Safety Report 6187270-7 (Version None)
Quarter: 2009Q2

REPORT INFORMATION
  Report Type: 
  Country: None (occurrence: None)
  Receive Date: 20090512
  Receipt Date: 20090430
  Transmission Date: 20091009
  Serious: Yes (Hospitalization)
  Sender: FDA-Public Use
  Company Number: ES-GILEAD-E2B_00000333

PATIENT
  Age: 44 Year
  Sex: Male

DRUGS (6)
  1. VIREAD [Suspect]
     Indication: HIV INFECTION
     Route: 048
     Dates: start: 20090311, end: 20090328
  2. SULFADIAZINA [Suspect]
     Dosage: 2 COMP 500MG/6H
     Route: 048
     Dates: start: 20090309, end: 20090320
  3. DARAPRIM [Suspect]
     Route: 048
     Dates: start: 20090310, end: 20090320
  4. ZIAGEN [Suspect]
     Route: 048
     Dates: start: 20090311, end: 20090328
  5. SUSTIVA [Suspect]
     Route: 048
     Dates: start: 20090311, end: 20090328
  6. VALPROATE SODIUM [Suspect]
     Route: 048
     Dates: start: 20090308, end: 20090319

REACTIONS (2)
  - AGRANULOCYTOSIS [None]
  - THROMBOCYTOPENIA [None]
